FAERS Safety Report 21958432 (Version 9)
Quarter: 2025Q1

REPORT INFORMATION
  Report Type: Spontaneous
  Country: US (occurrence: US)
  Receive Date: 20230206
  Receipt Date: 20250217
  Transmission Date: 20250408
  Serious: Yes (Other)
  Sender: PFIZER
  Company Number: US-PFIZER INC-PV202300022231

PATIENT
  Age: 76 Year
  Sex: Female

DRUGS (2)
  1. IBRANCE [Suspect]
     Active Substance: PALBOCICLIB
     Indication: Breast cancer female
     Route: 048
  2. IBRANCE [Suspect]
     Active Substance: PALBOCICLIB

REACTIONS (3)
  - Neuropathy peripheral [Unknown]
  - Malaise [Unknown]
  - Pain [Not Recovered/Not Resolved]
